FAERS Safety Report 19331709 (Version 2)
Quarter: 2021Q2

REPORT INFORMATION
  Report Type: Spontaneous
  Country: TR (occurrence: TR)
  Receive Date: 20210528
  Receipt Date: 20210603
  Transmission Date: 20210717
  Serious: Yes (Other)
  Sender: FDA-Public Use
  Company Number: TR-GILEAD-2021-0533305

PATIENT
  Age: 52 Year
  Sex: Male

DRUGS (2)
  1. DARUNAVIR;RITONAVIR [Concomitant]
     Active Substance: DARUNAVIR\RITONAVIR
  2. TRUVADA [Suspect]
     Active Substance: EMTRICITABINE\TENOFOVIR DISOPROXIL FUMARATE
     Indication: HIV INFECTION
     Route: 065

REACTIONS (1)
  - Kaposi^s sarcoma [Not Recovered/Not Resolved]
